FAERS Safety Report 4919922-8 (Version None)
Quarter: 2006Q1

REPORT INFORMATION
  Report Type: 
  Country: None (occurrence: None)
  Receive Date: 20060216
  Receipt Date: 20060207
  Transmission Date: 20060701
  Serious: Yes (Other)
  Sender: FDA-Public Use
  Company Number: 2005165298

PATIENT
  Age: 76 Year
  Sex: Male
  Weight: 65.318 kg

DRUGS (4)
  1. CAVERJECT [Suspect]
     Dosage: 20 MCG AS NECESSARY
     Dates: start: 19970101
  2. SILDENAFIL CITRATE [Suspect]
     Dosage: ORAL
     Route: 048
     Dates: start: 20000801
  3. ZOPICLONE (ZOPICLONE) [Concomitant]
  4. PREDNISONE TAB [Concomitant]

REACTIONS (6)
  - CATARACT [None]
  - DRUG INEFFECTIVE [None]
  - ERECTION INCREASED [None]
  - INCORRECT DOSE ADMINISTERED [None]
  - PHARMACEUTICAL PRODUCT COMPLAINT [None]
  - TREATMENT NONCOMPLIANCE [None]
